FAERS Safety Report 10234973 (Version 3)
Quarter: 2015Q2

REPORT INFORMATION
  Report Type: Report from Study
  Country: CA (occurrence: CA)
  Receive Date: 20140613
  Receipt Date: 20150519
  Transmission Date: 20150821
  Serious: Yes (Other)
  Sender: FDA-Public Use
  Company Number: CA-BAYER-2014-083317

PATIENT
  Age: 66 Year
  Sex: Female

DRUGS (19)
  1. BETASERON [Suspect]
     Active Substance: INTERFERON BETA-1B
     Indication: MULTIPLE SCLEROSIS
     Dosage: 0.25 MG, UNK
  2. DIAMICRON MR [Concomitant]
     Active Substance: GLICLAZIDE
  3. METHOTREXATE [Concomitant]
     Active Substance: METHOTREXATE
  4. FLOVENT [Concomitant]
     Active Substance: FLUTICASONE PROPIONATE
  5. BETASERON [Suspect]
     Active Substance: INTERFERON BETA-1B
     Indication: MULTIPLE SCLEROSIS
     Dosage: 0.3 MG, UNK
     Dates: start: 20020102
  6. NITRO [Concomitant]
     Active Substance: NITROGLYCERIN
  7. VENTOLIN [Concomitant]
     Active Substance: ALBUTEROL SULFATE
  8. APO-DILTIAZ [Concomitant]
  9. PMS-AMANTADINE HYDROCHLORIDE [Concomitant]
  10. PMS-NORTRIPTYLINE [Concomitant]
  11. RIVASA [Concomitant]
     Active Substance: ASPIRIN
  12. DILANTIN [Concomitant]
     Active Substance: PHENYTOIN
  13. PMS-HYDROMORPHONE [Concomitant]
     Active Substance: HYDROMORPHONE HYDROCHLORIDE
  14. EPIPEN [Concomitant]
     Active Substance: EPINEPHRINE
  15. DOCUSATE [Concomitant]
     Active Substance: DOCUSATE
  16. LYRICA [Concomitant]
     Active Substance: PREGABALIN
  17. CRESTOR [Concomitant]
     Active Substance: ROSUVASTATIN CALCIUM
  18. DETROL [Concomitant]
     Active Substance: TOLTERODINE TARTRATE
  19. NEURO [Concomitant]

REACTIONS (5)
  - Epilepsy [Recovered/Resolved]
  - Syncope [Recovered/Resolved]
  - Fall [None]
  - Blindness transient [Recovering/Resolving]
  - Balance disorder [None]

NARRATIVE: CASE EVENT DATE: 2013
